FAERS Safety Report 9049511 (Version 4)
Quarter: 2014Q2

REPORT INFORMATION
  Report Type: Spontaneous
  Country: US (occurrence: US)
  Receive Date: 20130205
  Receipt Date: 20140407
  Transmission Date: 20141212
  Serious: Yes (Death, Hospitalization, Other)
  Sender: FDA-Public Use
  Company Number: US-009507513-1301USA014734

PATIENT
  Sex: Female
  Weight: 63.95 kg

DRUGS (2)
  1. FOSAMAX [Suspect]
     Indication: OSTEOPOROSIS
     Dosage: UNK
     Route: 048
  2. FOSAMAX [Suspect]
     Indication: BONE DENSITY DECREASED

REACTIONS (21)
  - Femoral neck fracture [Unknown]
  - Pancreatic carcinoma [Unknown]
  - Death [Fatal]
  - Humerus fracture [Unknown]
  - Humerus fracture [Unknown]
  - Humerus fracture [Unknown]
  - Fall [Unknown]
  - Cholecystectomy [Unknown]
  - Hip arthroplasty [Unknown]
  - Surgery [Unknown]
  - Depression [Unknown]
  - Dementia Alzheimer^s type [Unknown]
  - Dental implantation [Unknown]
  - Tooth extraction [Unknown]
  - Dental caries [Unknown]
  - Tooth infection [Unknown]
  - Tooth fracture [Unknown]
  - Appendicectomy [Unknown]
  - Bone disorder [Unknown]
  - Osteoarthritis [Unknown]
  - Rotator cuff syndrome [Unknown]
